FAERS Safety Report 7265275-2 (Version None)
Quarter: 2011Q1

REPORT INFORMATION
  Report Type: 
  Country: None (occurrence: None)
  Receive Date: 20110131
  Receipt Date: 20110124
  Transmission Date: 20110831
  Serious: Yes (Life-Threatening)
  Sender: FDA-Public Use
  Company Number: DE-JNJFOC-20100103963

PATIENT
  Age: 79 Year
  Sex: Female

DRUGS (2)
  1. REOPRO [Suspect]
     Indication: ACUTE MYOCARDIAL INFARCTION
     Route: 042
  2. REOPRO [Suspect]
     Route: 042

REACTIONS (1)
  - VENTRICULAR FIBRILLATION [None]
